FAERS Safety Report 7909030-6 (Version None)
Quarter: 2011Q4

REPORT INFORMATION
  Report Type: 
  Country: None (occurrence: None)
  Receive Date: 20111111
  Receipt Date: 20111104
  Transmission Date: 20120403
  Serious: Yes (Other)
  Sender: FDA-Public Use
  Company Number: FR-PFIZER INC-2011270043

PATIENT
  Age: 55 Year
  Sex: Female

DRUGS (1)
  1. METHYLPREDNISOLONE [Suspect]
     Indication: NEUROMYELITIS OPTICA
     Dosage: 6 G/3 DAYS
     Route: 040

REACTIONS (2)
  - HEMIPARESIS [None]
  - DRUG INEFFECTIVE [None]
